FAERS Safety Report 6079176-9 (Version None)
Quarter: 2009Q1

REPORT INFORMATION
  Report Type: 
  Country: None (occurrence: None)
  Receive Date: 20090216
  Receipt Date: 20090213
  Transmission Date: 20090719
  Serious: Yes (Hospitalization)
  Sender: FDA-Public Use
  Company Number: B0556690A

PATIENT
  Age: 8 Year
  Sex: Male

DRUGS (4)
  1. ALKERAN [Suspect]
     Indication: BONE MARROW TRANSPLANT
     Route: 042
  2. FLUDARABINE PHOSPHATE [Concomitant]
     Indication: BONE MARROW TRANSPLANT
     Dosage: 25MGM2 PER DAY
     Route: 065
  3. TACROLIMUS HYDRATE [Concomitant]
     Indication: PROPHYLAXIS AGAINST GRAFT VERSUS HOST DISEASE
     Route: 065
  4. METHOTREXATE [Concomitant]
     Indication: PROPHYLAXIS AGAINST GRAFT VERSUS HOST DISEASE
     Route: 065

REACTIONS (4)
  - DIARRHOEA [None]
  - DRUG TOXICITY [None]
  - LIVER DISORDER [None]
  - MUCOSAL INFLAMMATION [None]
